FAERS Safety Report 5868408-5 (Version None)
Quarter: 2008Q3

REPORT INFORMATION
  Report Type: 
  Country: None (occurrence: None)
  Receive Date: 20080828
  Receipt Date: 20080820
  Transmission Date: 20090109
  Serious: Yes (Death)
  Sender: FDA-Public Use
  Company Number: US024424

PATIENT
  Age: 43 Year
  Sex: Female
  Weight: 62.5964 kg

DRUGS (3)
  1. AMRIX [Suspect]
     Indication: MUSCLE STRAIN
     Dosage: 15 MG QHS ORAL
     Route: 048
     Dates: start: 20080814
  2. VICODIN [Concomitant]
  3. VOLTAREN /00372301/ [Concomitant]

REACTIONS (2)
  - CHOKING SENSATION [None]
  - DYSPNOEA [None]
